FAERS Safety Report 10213463 (Version 1)
Quarter: 2014Q2

REPORT INFORMATION
  Report Type: Spontaneous
  Country: US (occurrence: None)
  Receive Date: 20140530
  Receipt Date: 20140530
  Transmission Date: 20141212
  Serious: Yes (Other)
  Sender: FDA-Public Use
  Company Number: AEGR000476

PATIENT
  Age: 50 Year
  Sex: Female
  Weight: 69.4 kg

DRUGS (10)
  1. JUXTAPID [Suspect]
     Indication: TYPE IIA HYPERLIPIDAEMIA
     Route: 048
     Dates: start: 201311, end: 201312
  2. CHANTIX [Suspect]
     Indication: PRODUCT USED FOR UNKNOWN INDICATION
  3. EFFIENT [Suspect]
     Indication: ANTICOAGULANT THERAPY
     Dates: end: 201404
  4. ASPIRIN [Suspect]
     Indication: ANTICOAGULANT THERAPY
  5. CRESTOR (ROSUVASTATIN CALCIUM) [Concomitant]
  6. IMDUR (ISOSORBIDE MONONITRATE) [Concomitant]
  7. METOPROLOL TARTRATE (METOPROLOL TARTRATE) [Concomitant]
  8. VITAMIN E (TOCOPHEROL) [Concomitant]
  9. FISH OIL (FISH OIL) [Concomitant]
  10. LEXAPRO (ESCITALOPRAM OXALATE) [Concomitant]

REACTIONS (11)
  - Rectal haemorrhage [None]
  - Gastroenteritis viral [None]
  - Constipation [None]
  - Abdominal pain upper [None]
  - Flatulence [None]
  - Nausea [None]
  - Diarrhoea [None]
  - Vomiting [None]
  - Lethargy [None]
  - Medication residue present [None]
  - Off label use [None]
